FAERS Safety Report 9432621 (Version 2)
Quarter: 2013Q3

REPORT INFORMATION
  Report Type: Spontaneous
  Country: FR (occurrence: FR)
  Receive Date: 20130731
  Receipt Date: 20130808
  Transmission Date: 20140515
  Serious: Yes (Life-Threatening)
  Sender: FDA-Public Use
  Company Number: PHHY2013FR080488

PATIENT
  Age: 52 Year
  Sex: Male

DRUGS (4)
  1. AMOXICILLIN+CLAVULANATE SANDOZ [Suspect]
     Indication: PRODUCT USED FOR UNKNOWN INDICATION
     Route: 042
     Dates: start: 20130601, end: 20130601
  2. PARACETAMOL [Suspect]
     Indication: PRODUCT USED FOR UNKNOWN INDICATION
     Route: 042
     Dates: start: 20130601
  3. TRAMADOL LAVOISIER [Suspect]
     Indication: PRODUCT USED FOR UNKNOWN INDICATION
     Dosage: 200 MG, TOTAL
     Route: 042
     Dates: start: 20130601, end: 20130601
  4. NEFOPAM [Suspect]
     Indication: PRODUCT USED FOR UNKNOWN INDICATION
     Dosage: 20 MG, TOTAL DOSE
     Route: 042
     Dates: start: 20130601, end: 201306

REACTIONS (2)
  - Pharyngeal oedema [Recovered/Resolved]
  - Palatal oedema [Recovered/Resolved]
